FAERS Safety Report 21364142 (Version 1)
Quarter: 2022Q3

REPORT INFORMATION
  Report Type: Spontaneous
  Country: US (occurrence: US)
  Receive Date: 20220922
  Receipt Date: 20220922
  Transmission Date: 20221026
  Serious: Yes (Other)
  Sender: FDA-Public Use
  Company Number: US-BAYER-2022A130672

PATIENT
  Age: 23 Year
  Sex: Female

DRUGS (1)
  1. MIRENA [Suspect]
     Active Substance: LEVONORGESTREL
     Dosage: 20?G/DAY
     Route: 015
     Dates: start: 2021

REACTIONS (4)
  - Embedded device [None]
  - Abdominal pain upper [None]
  - Headache [None]
  - Amenorrhoea [None]

NARRATIVE: CASE EVENT DATE: 20220322
